FAERS Safety Report 19785374 (Version 1)
Quarter: 2021Q3

REPORT INFORMATION
  Report Type: Spontaneous
  Country: FR (occurrence: FR)
  Receive Date: 20210903
  Receipt Date: 20210903
  Transmission Date: 20211014
  Serious: Yes (Other)
  Sender: FDA-Public Use
  Company Number: FR-PFIZER INC-202101094541

PATIENT
  Age: 21 Year
  Sex: Male

DRUGS (4)
  1. VALIUM [Suspect]
     Active Substance: DIAZEPAM
     Dosage: 5 TABLETS OF 10MG IN TOTAL
     Route: 048
     Dates: start: 20200617, end: 20200617
  2. HEROIN [Suspect]
     Active Substance: DIAMORPHINE
     Dosage: UNK
     Route: 045
  3. METHADONE [Suspect]
     Active Substance: METHADONE HYDROCHLORIDE
     Dosage: 60 MG
     Route: 048
     Dates: start: 20200617, end: 20200617
  4. XANAX [Suspect]
     Active Substance: ALPRAZOLAM
     Dosage: 2.5MG OR 5MG
     Route: 048
     Dates: start: 20200617, end: 20200617

REACTIONS (3)
  - Suicidal ideation [Recovering/Resolving]
  - Drug abuse [Not Recovered/Not Resolved]
  - Poisoning deliberate [Recovered/Resolved]

NARRATIVE: CASE EVENT DATE: 20200617
